FAERS Safety Report 4988966-2 (Version None)
Quarter: 2006Q2

REPORT INFORMATION
  Report Type: 
  Country: None (occurrence: None)
  Receive Date: 20060502
  Receipt Date: 20060428
  Transmission Date: 20061013
  Serious: Yes (Death)
  Sender: FDA-Public Use
  Company Number: US-BRISTOL-MYERS SQUIBB COMPANY-13361241

PATIENT
  Sex: Male

DRUGS (1)
  1. SERZONE [Suspect]

REACTIONS (1)
  - HEPATIC FAILURE [None]
